FAERS Safety Report 13958078 (Version 1)
Quarter: 2017Q3

REPORT INFORMATION
  Report Type: Spontaneous
  Country: DK (occurrence: DK)
  Receive Date: 20170912
  Receipt Date: 20170912
  Transmission Date: 20171128
  Serious: Yes (Disabling)
  Sender: FDA-Public Use
  Company Number: PHHY2017DK130843

PATIENT
  Age: 81 Year
  Sex: Male

DRUGS (4)
  1. BISOPROLOL SANDOZ [Suspect]
     Active Substance: BISOPROLOL
     Dosage: UNK
     Route: 065
     Dates: start: 201705
  2. BISOPROLOL SANDOZ [Suspect]
     Active Substance: BISOPROLOL
     Indication: ATRIAL FIBRILLATION
     Dosage: 3 DF, QD
     Route: 065
     Dates: start: 201705
  3. ELIQUIS [Concomitant]
     Active Substance: APIXABAN
     Indication: ATRIAL FIBRILLATION
     Dosage: 2 DF, QD
     Route: 065
  4. ELIQUIS [Concomitant]
     Active Substance: APIXABAN
     Indication: APHASIA

REACTIONS (1)
  - Auditory disorder [Not Recovered/Not Resolved]

NARRATIVE: CASE EVENT DATE: 201706
